FAERS Safety Report 5871169-7 (Version None)
Quarter: 2008Q3

REPORT INFORMATION
  Report Type: 
  Country: None (occurrence: None)
  Receive Date: 20080902
  Receipt Date: 20080820
  Transmission Date: 20090109
  Serious: Yes (Other)
  Sender: FDA-Public Use
  Company Number: 2008BI021405

PATIENT
  Age: 50 Year
  Sex: Female
  Weight: 58.0604 kg

DRUGS (3)
  1. TYSABRI [Suspect]
     Indication: MULTIPLE SCLEROSIS
     Dosage: 300 MG; QM; IV
     Route: 042
     Dates: start: 20071210
  2. PRECOSE (CON.) [Concomitant]
  3. OCTREOTIDE (CON.) [Concomitant]

REACTIONS (12)
  - ARTERIOSCLEROSIS [None]
  - ASTHENIA [None]
  - BALANCE DISORDER [None]
  - HYPERTENSION [None]
  - NAIL DISORDER [None]
  - OEDEMA PERIPHERAL [None]
  - ONYCHOMADESIS [None]
  - PETECHIAE [None]
  - SPLENECTOMY [None]
  - THROMBOSIS [None]
  - TREMOR [None]
  - VISUAL IMPAIRMENT [None]
